FAERS Safety Report 5266890-8 (Version None)
Quarter: 2007Q1

REPORT INFORMATION
  Report Type: 
  Country: None (occurrence: None)
  Receive Date: 20070316
  Receipt Date: 20070223
  Transmission Date: 20070707
  Serious: Yes (Other)
  Sender: FDA-Public Use
  Company Number: PHBS2007BR02567

PATIENT
  Age: 58 Year
  Sex: Male
  Weight: 87 kg

DRUGS (7)
  1. FORASEQ [Suspect]
     Indication: CHRONIC OBSTRUCTIVE PULMONARY DISEASE
     Dosage: UNK, QD
     Dates: start: 20040101
  2. PAROXETINE HCL [Concomitant]
     Indication: DEPRESSION
     Dosage: 20 MG, QD
     Route: 048
  3. RIVOTRIL [Concomitant]
     Indication: TINNITUS
     Dosage: 2 MG, BID
     Route: 048
  4. FORMOTEROL FUMARATE [Concomitant]
     Dosage: 12 UG, BID
  5. FORMOTEROL FUMARATE [Concomitant]
     Dosage: 12 UG, QD
  6. FLUTICASONE PROPIONATE [Concomitant]
     Dosage: 250 UG, BID
  7. FLUTICASONE PROPIONATE [Concomitant]
     Dosage: 250 UG, QD

REACTIONS (10)
  - ANXIETY [None]
  - APHTHOUS STOMATITIS [None]
  - BREATH SOUNDS ABNORMAL [None]
  - BRONCHOSPASM [None]
  - CANDIDIASIS [None]
  - DIZZINESS [None]
  - DYSPHONIA [None]
  - DYSPNOEA [None]
  - LOSS OF CONSCIOUSNESS [None]
  - NASAL CONGESTION [None]
